FAERS Safety Report 9629222 (Version 3)
Quarter: 2014Q2

REPORT INFORMATION
  Report Type: Spontaneous
  Country: US (occurrence: US)
  Receive Date: 20131017
  Receipt Date: 20140520
  Transmission Date: 20141212
  Serious: Yes (Hospitalization, Other)
  Sender: FDA-Public Use
  Company Number: US-009507513-1310USA005613

PATIENT
  Sex: Female

DRUGS (7)
  1. FOSAMAX [Suspect]
     Indication: OSTEOPOROSIS
     Dosage: 70MGQW
     Route: 048
     Dates: start: 2003, end: 2009
  2. ALENDRONATE SODIUM [Suspect]
     Indication: OSTEOPOROSIS
     Dosage: 70 MG, QW
     Route: 048
     Dates: start: 2008, end: 20110930
  3. ASCORBIC ACID [Concomitant]
     Dosage: 500 MG, UNK
     Dates: start: 2000
  4. CALCIUM (UNSPECIFIED) [Concomitant]
     Dosage: 600 MG, UNK
     Dates: start: 2000
  5. VITAMIN E [Concomitant]
     Dosage: 500 MG, UNK
     Dates: start: 2000, end: 2009
  6. ATENOLOL [Concomitant]
     Dosage: 1 QD
     Route: 048
  7. VITAMINS (UNSPECIFIED) [Concomitant]

REACTIONS (11)
  - Femur fracture [Unknown]
  - Femur fracture [Unknown]
  - Intramedullary rod insertion [Unknown]
  - Surgery [Unknown]
  - Open reduction of fracture [Unknown]
  - Cholecystectomy [Unknown]
  - Upper limb fracture [Unknown]
  - Arthritis [Unknown]
  - Hypertension [Unknown]
  - Osteoarthritis [Unknown]
  - Osteoarthritis [Unknown]
